FAERS Safety Report 18448273 (Version 1)
Quarter: 2020Q4

REPORT INFORMATION
  Report Type: Spontaneous
  Country: US (occurrence: US)
  Receive Date: 20201030
  Receipt Date: 20201030
  Transmission Date: 20210114
  Serious: Yes (Hospitalization)
  Sender: FDA-Public Use
  Company Number: US-MYLANLABS-2020M1090753

PATIENT
  Age: 60 Year
  Sex: Female

DRUGS (1)
  1. DOXORUBICIN HYDROCHLORIDE FOR INJECTION [Suspect]
     Active Substance: DOXORUBICIN HYDROCHLORIDE
     Indication: HEPATOCELLULAR CARCINOMA
     Dosage: TRANSCATHETER ARTERIAL CHEMOEMBOLIZATION OF THE LEFT HEPATIC ARTERY WITH DOXORUBICIN LOADED LC BEADS
     Route: 013

REACTIONS (1)
  - Pneumonitis [Recovering/Resolving]
